FAERS Safety Report 24410129 (Version 2)
Quarter: 2024Q4

REPORT INFORMATION
  Report Type: Spontaneous
  Country: JP (occurrence: JP)
  Receive Date: 20241008
  Receipt Date: 20241023
  Transmission Date: 20250115
  Serious: Yes (Hospitalization)
  Sender: TEVA
  Company Number: JP-TEVA-VS-3249800

PATIENT
  Age: 60 Year
  Sex: Male

DRUGS (10)
  1. FENTANYL [Interacting]
     Active Substance: FENTANYL
     Indication: Induction of anaesthesia
     Route: 065
  2. FENTANYL [Interacting]
     Active Substance: FENTANYL
     Indication: Induction of anaesthesia
     Dosage: 20  G/ML/HR WITH LOCK TIME 10 MIN
     Route: 042
  3. FENTANYL [Interacting]
     Active Substance: FENTANYL
     Indication: Induction of anaesthesia
     Dosage: BOLUS DOSE. RECEIVED A TOTAL OF FENTANYL 1.33MG
     Route: 042
  4. DIAZEPAM [Interacting]
     Active Substance: DIAZEPAM
     Indication: Catatonia
     Route: 042
  5. LORAZEPAM [Interacting]
     Active Substance: LORAZEPAM
     Indication: Catatonia
     Route: 048
  6. REMIFENTANIL [Concomitant]
     Active Substance: REMIFENTANIL
     Indication: Maintenance of anaesthesia
     Route: 065
  7. ROCURONIUM BROMIDE [Concomitant]
     Active Substance: ROCURONIUM BROMIDE
     Indication: Induction of anaesthesia
     Route: 065
  8. OLANZAPINE [Concomitant]
     Active Substance: OLANZAPINE
     Indication: Schizophrenia
     Route: 065
  9. DESFLURANE [Concomitant]
     Active Substance: DESFLURANE
     Indication: Maintenance of anaesthesia
     Route: 065
  10. PROPOFOL [Concomitant]
     Active Substance: PROPOFOL
     Indication: Induction of anaesthesia
     Route: 065

REACTIONS (2)
  - Respiratory depression [Recovering/Resolving]
  - Drug interaction [Recovering/Resolving]
